FAERS Safety Report 5399286-9 (Version None)
Quarter: 2007Q3

REPORT INFORMATION
  Report Type: 
  Country: None (occurrence: None)
  Receive Date: 20070727
  Receipt Date: 20070720
  Transmission Date: 20080115
  Serious: Yes (Other)
  Sender: FDA-Public Use
  Company Number: B0480781A

PATIENT
  Age: 35 Year
  Sex: Female

DRUGS (5)
  1. PAROXETINE HCL [Suspect]
     Dosage: 20MG PER DAY
     Route: 048
     Dates: start: 20070320
  2. ZYPREXA [Suspect]
     Dosage: 10MG PER DAY
     Route: 048
     Dates: start: 20070307
  3. XANAX [Concomitant]
     Dosage: .125MG TWICE PER DAY
     Route: 048
     Dates: start: 20070204
  4. METOPROLOL SUCCINATE [Concomitant]
     Dosage: 50MG PER DAY
     Route: 048
     Dates: start: 20070101
  5. DUSPATALIN [Concomitant]
     Indication: ABDOMINAL PAIN
     Dosage: 135MG TWICE PER DAY
     Route: 048
     Dates: start: 20060101

REACTIONS (3)
  - DRUG LEVEL INCREASED [None]
  - ELECTROCARDIOGRAM QT PROLONGED [None]
  - OVERDOSE [None]
